FAERS Safety Report 7488898-4 (Version None)
Quarter: 2011Q2

REPORT INFORMATION
  Report Type: 
  Country: None (occurrence: None)
  Receive Date: 20110511
  Receipt Date: 20110428
  Transmission Date: 20111010
  Serious: Yes (Disabling)
  Sender: FDA-Public Use
  Company Number: 2011-0832

PATIENT
  Age: 54 Year
  Sex: Male

DRUGS (1)
  1. DYSPORT [Suspect]
     Indication: SKIN WRINKLING
     Dosage: 65 UNITS (65 UNITS,SINGLE CYCLE), SUBCUTANEOUS
     Route: 058
     Dates: start: 20110316, end: 20110316

REACTIONS (3)
  - OVERDOSE [None]
  - PRODUCT RECONSTITUTION ISSUE [None]
  - VIITH NERVE PARALYSIS [None]
